FAERS Safety Report 6772601-7 (Version None)
Quarter: 2010Q2

REPORT INFORMATION
  Report Type: 
  Country: None (occurrence: None)
  Receive Date: 20100616
  Receipt Date: 20091207
  Transmission Date: 20101027
  Serious: No
  Sender: FDA-Public Use
  Company Number: US-ASTRAZENECA-2009SE30869

PATIENT
  Age: 3 Year
  Sex: Male
  Weight: 25.4 kg

DRUGS (3)
  1. PULMICORT RESPULES [Suspect]
     Indication: ASTHMA
     Route: 055
     Dates: start: 20070101
  2. ALBUTEROL [Suspect]
     Indication: ASTHMA
     Dosage: AS REQUIRED
  3. CLARITIN [Concomitant]

REACTIONS (5)
  - DYSPNOEA [None]
  - GROWTH ACCELERATED [None]
  - PSYCHOMOTOR HYPERACTIVITY [None]
  - WHEEZING [None]
  - WRONG TECHNIQUE IN DRUG USAGE PROCESS [None]
